FAERS Safety Report 18882790 (Version 6)
Quarter: 2024Q1

REPORT INFORMATION
  Report Type: Spontaneous
  Country: US (occurrence: US)
  Receive Date: 20210211
  Receipt Date: 20240326
  Transmission Date: 20240410
  Serious: Yes (Other)
  Sender: FDA-Public Use
  Company Number: US-PFIZER INC-2021142932

PATIENT
  Age: 59 Year
  Sex: Female
  Weight: 76.66 kg

DRUGS (3)
  1. XELJANZ [Suspect]
     Active Substance: TOFACITINIB CITRATE
     Indication: Psoriatic arthropathy
     Dosage: 5 MG, 2X/DAY
     Route: 048
     Dates: start: 2016
  2. XELJANZ [Suspect]
     Active Substance: TOFACITINIB CITRATE
     Dosage: 5 MG, 2X/DAY
     Route: 048
     Dates: start: 2018
  3. ATORVASTATIN [Concomitant]
     Active Substance: ATORVASTATIN
     Indication: Blood cholesterol increased
     Dosage: UNK
     Dates: start: 2013

REACTIONS (13)
  - Cauda equina syndrome [Unknown]
  - Fall [Unknown]
  - Wrist fracture [Unknown]
  - Spinal operation [Unknown]
  - Shoulder operation [Unknown]
  - Condition aggravated [Not Recovered/Not Resolved]
  - Shoulder arthroplasty [Unknown]
  - Carpal tunnel syndrome [Unknown]
  - Pain [Unknown]
  - Osteoarthritis [Unknown]
  - Musculoskeletal stiffness [Unknown]
  - COVID-19 [Unknown]
  - Nausea [Unknown]

NARRATIVE: CASE EVENT DATE: 20200201
